FAERS Safety Report 9907696 (Version 1)
Quarter: 2014Q1

REPORT INFORMATION
  Report Type: Spontaneous
  Country: US (occurrence: US)
  Receive Date: 20140219
  Receipt Date: 20140219
  Transmission Date: 20141002
  Serious: No
  Sender: FDA-Public Use
  Company Number: US-BIOGENIDEC-2012BI028945

PATIENT
  Age: 45 Year
  Sex: Female

DRUGS (1)
  1. AVONEX [Suspect]
     Indication: MULTIPLE SCLEROSIS
     Route: 030
     Dates: start: 20090826, end: 20130820

REACTIONS (3)
  - Nasopharyngitis [Recovered/Resolved]
  - Gastric disorder [Recovered/Resolved]
  - Influenza like illness [Recovered/Resolved]
